FAERS Safety Report 21786647 (Version 1)
Quarter: 2022Q4

REPORT INFORMATION
  Report Type: Report from Study
  Country: US (occurrence: US)
  Receive Date: 20221228
  Receipt Date: 20221228
  Transmission Date: 20230112
  Serious: No
  Sender: FDA-Public Use
  Company Number: US-ABBVIE-4215270

PATIENT
  Sex: Male

DRUGS (2)
  1. CARBIDOPA\LEVODOPA [Suspect]
     Active Substance: CARBIDOPA\LEVODOPA
     Indication: Parkinson^s disease
     Dosage: 16 HOURS EACH DAY?MORNING DOSE: 14 ML, CONTINUOUS DOSE: 2.4 ML/HOUR (RANGE: 2.4 - 2.5 ML/HOUR), E...
     Route: 050
     Dates: start: 202111
  2. CARBIDOPA\LEVODOPA [Suspect]
     Active Substance: CARBIDOPA\LEVODOPA

REACTIONS (4)
  - Head injury [Unknown]
  - Fall [Unknown]
  - Chest injury [Unknown]
  - Lethargy [Unknown]
